FAERS Safety Report 21593408 (Version 1)
Quarter: 2022Q4

REPORT INFORMATION
  Report Type: Report from Study
  Country: US (occurrence: US)
  Receive Date: 20221114
  Receipt Date: 20221114
  Transmission Date: 20230113
  Serious: No
  Sender: FDA-Public Use
  Company Number: US-ABBVIE-22K-163-4435052-00

PATIENT
  Sex: Male

DRUGS (1)
  1. IMBRUVICA [Suspect]
     Active Substance: IBRUTINIB
     Indication: Waldenstrom^s macroglobulinaemia
     Route: 048
     Dates: start: 202102

REACTIONS (6)
  - Fatigue [Unknown]
  - Heart rate decreased [Unknown]
  - Haemorrhagic diathesis [Unknown]
  - Blood pressure abnormal [Unknown]
  - Platelet count abnormal [Unknown]
  - Asthenia [Unknown]
